FAERS Safety Report 7644276-6 (Version None)
Quarter: 2011Q3

REPORT INFORMATION
  Report Type: 
  Country: None (occurrence: None)
  Receive Date: 20110729
  Receipt Date: 20110725
  Transmission Date: 20111222
  Serious: Yes (Death, Hospitalization, Other)
  Sender: FDA-Public Use
  Company Number: PHEH2007US11452

PATIENT
  Sex: Male

DRUGS (56)
  1. MELPHALAN HYDROCHLORIDE [Concomitant]
  2. ATROVENT [Concomitant]
  3. OMEPRAZOLE [Concomitant]
  4. PENICILLIN VK [Concomitant]
  5. CALCIUM ACETATE [Concomitant]
  6. LOVAZA [Concomitant]
  7. COLCHICINE [Concomitant]
  8. PROMETHAZINE [Concomitant]
     Route: 042
  9. PRINIVIL [Concomitant]
     Dosage: 20 MG, UNK
  10. FUROSEMIDE [Concomitant]
  11. RENAGEL [Concomitant]
  12. TERAZOSIN HCL [Concomitant]
  13. PENICILLIN ^GRUNENTHAL^ [Concomitant]
     Dosage: 500 MG, UNK
  14. COZAAR [Concomitant]
     Dosage: 50 MG, UNK
  15. PREDNISOLONE [Concomitant]
  16. CIPROFLOXACIN [Concomitant]
  17. THALIDOMIDE [Concomitant]
  18. PREDNISONE [Concomitant]
  19. GABAPENTIN [Concomitant]
     Dosage: 100 MG, UNK
  20. CLINDAMYCIN [Concomitant]
     Dosage: 150 MG, UNK
  21. NORVASC [Concomitant]
     Dosage: 10 MG, UNK
  22. LASIX [Concomitant]
     Dosage: 20MG QD
  23. PROSCAR [Concomitant]
     Dosage: 5MG QD
  24. NAPROSYN [Concomitant]
     Dosage: 500MG QD
     Dates: end: 19990729
  25. AUGMENTIN '125' [Concomitant]
  26. VELCADE [Concomitant]
  27. PROCRIT                            /00909301/ [Concomitant]
  28. SIMVASTATIN [Concomitant]
  29. FLOMAX [Concomitant]
     Dates: start: 20060731
  30. METOPROLOL TARTRATE [Concomitant]
     Dosage: 12.5 MG, DAILY
     Route: 048
     Dates: start: 20060605
  31. CIPRO [Concomitant]
     Dosage: 250 MG, UNK
  32. ALKERAN [Concomitant]
     Dosage: 2 MG, UNK
  33. PROBENECID [Concomitant]
     Dosage: 500MG QD
     Dates: end: 19990729
  34. FOSAMAX [Concomitant]
  35. LEVOTHYROXINE SODIUM [Concomitant]
  36. GATIFLOXACIN [Concomitant]
  37. DEXAMETHASONE [Concomitant]
  38. SEVELAMER [Concomitant]
  39. VITAMIN B-12 [Concomitant]
  40. ZOCOR [Concomitant]
     Route: 048
     Dates: start: 20060605
  41. AREDIA [Suspect]
     Dosage: UNK
  42. NEURONTIN [Concomitant]
     Dosage: 400 MG, UNK
  43. MINOXIDIL [Concomitant]
     Dosage: 10 MG, UNK
  44. AXID [Concomitant]
     Dosage: 150MG BID
  45. HEPARIN [Concomitant]
  46. HYDROCODONE BITARTRATE [Concomitant]
  47. CARDURA                                 /IRE/ [Concomitant]
     Dosage: 8 MG HS
  48. ATENOLOL [Concomitant]
     Dosage: 100MG HS
  49. LIPITOR [Concomitant]
     Dosage: 10MG QD
  50. CHLORHEXIDINE GLUCONATE [Concomitant]
  51. VITAMIN B6 [Concomitant]
  52. FOLIC ACID [Concomitant]
     Dosage: 400 UG, DAILY
     Route: 048
     Dates: start: 20050719
  53. ALLOPURINOL [Concomitant]
     Dosage: 100MG QD
     Route: 048
  54. VITAMIN B1 TAB [Concomitant]
  55. EPOGEN [Concomitant]
     Dosage: UNK
     Dates: start: 20060522
  56. SENOKOT [Concomitant]
     Dates: start: 20050716

REACTIONS (73)
  - PAIN [None]
  - ANXIETY [None]
  - DISABILITY [None]
  - ARTERIOSCLEROSIS [None]
  - THROMBOCYTOPENIA [None]
  - DIZZINESS [None]
  - HYPOXIA [None]
  - HYPERPARATHYROIDISM SECONDARY [None]
  - HYPOTENSION [None]
  - PLEURAL EFFUSION [None]
  - BUNDLE BRANCH BLOCK RIGHT [None]
  - SUBMANDIBULAR MASS [None]
  - PYREXIA [None]
  - HEADACHE [None]
  - HYPOVOLAEMIA [None]
  - MALAISE [None]
  - PANCYTOPENIA [None]
  - SWELLING [None]
  - ULCER [None]
  - DEPRESSION [None]
  - NECK PAIN [None]
  - DEPRESSED LEVEL OF CONSCIOUSNESS [None]
  - PNEUMONIA [None]
  - HYPERGLYCAEMIA [None]
  - EPISTAXIS [None]
  - RASH [None]
  - RESTLESS LEGS SYNDROME [None]
  - OSTEONECROSIS OF JAW [None]
  - ANHEDONIA [None]
  - BONE PAIN [None]
  - ATRIAL FIBRILLATION [None]
  - GYNAECOMASTIA [None]
  - TOOTH INFECTION [None]
  - RESPIRATORY ACIDOSIS [None]
  - LETHARGY [None]
  - PULMONARY FIBROSIS [None]
  - HYPERCHOLESTEROLAEMIA [None]
  - FATIGUE [None]
  - RENAL OSTEODYSTROPHY [None]
  - CHEST PAIN [None]
  - NEOPLASM [None]
  - SQUAMOUS CELL CARCINOMA [None]
  - LUNG INFILTRATION [None]
  - ARTERIOVENOUS FISTULA [None]
  - CHRONIC OBSTRUCTIVE PULMONARY DISEASE [None]
  - LEUKOPENIA [None]
  - GASTROOESOPHAGEAL REFLUX DISEASE [None]
  - NAUSEA [None]
  - DIARRHOEA [None]
  - TUMOUR NECROSIS [None]
  - INJURY [None]
  - CARDIOMEGALY [None]
  - RENAL FAILURE CHRONIC [None]
  - NEUROPATHY PERIPHERAL [None]
  - DEMENTIA [None]
  - HYPOPHOSPHATAEMIA [None]
  - CONTUSION [None]
  - DEATH [None]
  - GASTRITIS [None]
  - CARDIAC FAILURE CONGESTIVE [None]
  - HYPERKALAEMIA [None]
  - PNEUMONIA ASPIRATION [None]
  - DYSPHAGIA [None]
  - ABSCESS [None]
  - RESPIRATORY DISTRESS [None]
  - PULMONARY OEDEMA [None]
  - ATELECTASIS [None]
  - PRURITUS [None]
  - DEVICE RELATED INFECTION [None]
  - CERVICAL VERTEBRAL FRACTURE [None]
  - HYPOACUSIS [None]
  - NEPHROPATHY [None]
  - CONSTIPATION [None]
